FAERS Safety Report 20082363 (Version 1)
Quarter: 2021Q4

REPORT INFORMATION
  Report Type: Spontaneous
  Country: CN (occurrence: CN)
  Receive Date: 20211117
  Receipt Date: 20211117
  Transmission Date: 20220303
  Serious: Yes (Hospitalization, Other)
  Sender: FDA-Public Use
  Company Number: CN-PFIZER INC-202101527934

PATIENT
  Age: 70 Year
  Sex: Female
  Weight: 69.3 kg

DRUGS (3)
  1. PACLITAXEL [Suspect]
     Active Substance: PACLITAXEL
     Indication: Ovarian cancer
     Dosage: 90 MG, 1X/DAY
     Dates: start: 20210917, end: 20210917
  2. CARBOPLATIN [Suspect]
     Active Substance: CARBOPLATIN
     Indication: Ovarian cancer
     Dosage: 0.3 G, 1X/DAY
     Route: 041
     Dates: start: 20210917, end: 20210917
  3. BEVACIZUMAB [Concomitant]
     Active Substance: BEVACIZUMAB
     Indication: Targeted cancer therapy
     Dosage: 400 MG, 1X/DAY
     Route: 041
     Dates: start: 20210917, end: 20210917

REACTIONS (5)
  - Myelosuppression [Not Recovered/Not Resolved]
  - Enteritis [Not Recovered/Not Resolved]
  - Bacteraemia [Not Recovered/Not Resolved]
  - Abdominal pain [Not Recovered/Not Resolved]
  - Pyrexia [Not Recovered/Not Resolved]

NARRATIVE: CASE EVENT DATE: 20210922
